FAERS Safety Report 9554482 (Version 1)
Quarter: 2013Q3

REPORT INFORMATION
  Report Type: Spontaneous
  Country: CA (occurrence: CA)
  Receive Date: 20130925
  Receipt Date: 20130925
  Transmission Date: 20140515
  Serious: Yes (Other)
  Sender: FDA-Public Use
  Company Number: CA-009507513-1309CAN012074

PATIENT
  Age: 40 Year
  Sex: Female

DRUGS (5)
  1. NASONEX [Suspect]
     Indication: PRODUCT USED FOR UNKNOWN INDICATION
     Dosage: 4 DF, QD
     Route: 045
  2. CLOBEX [Concomitant]
  3. CLOBEX [Concomitant]
  4. PMS DESONIDE [Concomitant]
  5. TYLENOL EXTRA STRENGTH [Concomitant]

REACTIONS (3)
  - Musculoskeletal pain [Recovered/Resolved]
  - Parosmia [Recovered/Resolved]
  - Sinus headache [Recovered/Resolved]
